FAERS Safety Report 16353114 (Version 1)
Quarter: 2019Q3

REPORT INFORMATION
  Report Type: Spontaneous
  Country: US (occurrence: US)
  Receive Date: 20190523
  Receipt Date: 20190523
  Transmission Date: 20191004
  Serious: Yes (Hospitalization)
  Sender: FDA-Public Use
  Company Number: None

PATIENT
  Age: 64 Year
  Sex: Male

DRUGS (3)
  1. TRAZADONE 50MG TABLETS [Concomitant]
     Dates: start: 20190306
  2. VENLAFAXINE 75MG ER CAPSULES [Concomitant]
     Dates: start: 20190306
  3. COSENTYX [Suspect]
     Active Substance: SECUKINUMAB
     Indication: PSORIASIS
     Dosage: ?          OTHER FREQUENCY:EVERY WEEK FOR 5 W;?
     Route: 058

REACTIONS (3)
  - Gastric disorder [None]
  - Gastritis [None]
  - Blood bilirubin increased [None]

NARRATIVE: CASE EVENT DATE: 20190513
